FAERS Safety Report 7469302-9 (Version None)
Quarter: 2011Q2

REPORT INFORMATION
  Report Type: 
  Country: None (occurrence: None)
  Receive Date: 20110510
  Receipt Date: 20110506
  Transmission Date: 20111010
  Serious: Yes (Death, Other)
  Sender: FDA-Public Use
  Company Number: VE-PFIZER INC-2011099005

PATIENT
  Age: 84 Year
  Sex: Male

DRUGS (3)
  1. ALDACTONE [Concomitant]
     Indication: PROPHYLAXIS
     Dosage: 25 MG, 1X/DAY
     Route: 048
  2. ENALAPRIL [Concomitant]
     Indication: PROPHYLAXIS
     Dosage: 5 MG, 1X/DAY
     Route: 048
  3. LIPITOR [Suspect]
     Indication: PROPHYLAXIS
     Dosage: 20 MG, 1X/DAY
     Route: 048
     Dates: start: 20090101

REACTIONS (1)
  - MYOCARDIAL INFARCTION [None]
